FAERS Safety Report 6270229-9 (Version None)
Quarter: 2009Q3

REPORT INFORMATION
  Report Type: 
  Country: None (occurrence: None)
  Receive Date: 20090716
  Receipt Date: 20090708
  Transmission Date: 20100115
  Serious: Yes (Hospitalization)
  Sender: FDA-Public Use
  Company Number: SE-JNJFOC-20090702835

PATIENT
  Age: 59 Year
  Sex: Male

DRUGS (8)
  1. REMICADE [Suspect]
     Indication: RHEUMATOID ARTHRITIS
     Route: 042
  2. VOLTAREN [Concomitant]
  3. COZAAR [Concomitant]
  4. KALCIPOS D [Concomitant]
  5. METHOTREXATE [Concomitant]
  6. FOLACIN [Concomitant]
  7. PREDNISOLONE [Concomitant]
  8. NORMORIX [Concomitant]

REACTIONS (1)
  - PROSTATE CANCER [None]
